FAERS Safety Report 9610668 (Version 2)
Quarter: 2013Q4

REPORT INFORMATION
  Report Type: Spontaneous
  Country: US (occurrence: US)
  Receive Date: 20131009
  Receipt Date: 20131211
  Transmission Date: 20140711
  Serious: Yes (Hospitalization)
  Sender: FDA-Public Use
  Company Number: US-BAYER-2013-122031

PATIENT
  Age: 45 Year
  Sex: Female

DRUGS (3)
  1. YAZ [Suspect]
     Dosage: UNK
     Dates: start: 200704, end: 200708
  2. YASMIN [Suspect]
     Dosage: UNK
     Dates: start: 200403, end: 200703
  3. ALEVE TABLET [Concomitant]
     Indication: PAIN IN EXTREMITY

REACTIONS (1)
  - Deep vein thrombosis [None]
